FAERS Safety Report 9023484 (Version 1)
Quarter: 2013Q1

REPORT INFORMATION
  Report Type: Spontaneous
  Country: CA (occurrence: CA)
  Receive Date: 20130121
  Receipt Date: 20130121
  Transmission Date: 20140127
  Serious: Yes (Other)
  Sender: FDA-Public Use
  Company Number: CHPA2013CA001023

PATIENT
  Age: 69 Year
  Sex: Male

DRUGS (3)
  1. OTRIVIN [Suspect]
     Indication: NASAL CONGESTION
     Dosage: UNK, 2 TO 3 TIMES DAILY
     Route: 045
  2. OTRIVIN [Suspect]
     Indication: NASAL CONGESTION
     Dosage: UNK, 2 TO 3 TIMES DAILY
     Route: 045
  3. OTRIVIN [Suspect]
     Indication: NASAL CONGESTION
     Dosage: UNK, 2 TO 3 TIMES DAILY
     Route: 045

REACTIONS (2)
  - Epistaxis [Recovered/Resolved]
  - Incorrect drug administration duration [Unknown]
